FAERS Safety Report 25363801 (Version 1)
Quarter: 2025Q2

REPORT INFORMATION
  Report Type: Spontaneous
  Country: US (occurrence: US)
  Receive Date: 20250527
  Receipt Date: 20250527
  Transmission Date: 20250717
  Serious: No
  Sender: CHATTEM
  Company Number: US-OPELLA-2025OHG016265

PATIENT
  Sex: Male

DRUGS (4)
  1. ALLEGRA ALLERGY [Suspect]
     Active Substance: FEXOFENADINE HYDROCHLORIDE
     Indication: Rhinorrhoea
     Route: 065
     Dates: start: 202505
  2. ALLEGRA ALLERGY [Suspect]
     Active Substance: FEXOFENADINE HYDROCHLORIDE
     Indication: Sneezing
  3. PYRIBENZAMINE [Concomitant]
     Active Substance: TRIPELENNAMINE HYDROCHLORIDE
     Indication: Product used for unknown indication
     Route: 065
  4. SELDANE [Concomitant]
     Active Substance: TERFENADINE
     Indication: Product used for unknown indication
     Route: 065

REACTIONS (3)
  - Increased viscosity of upper respiratory secretion [Unknown]
  - Nasal congestion [Unknown]
  - Therapeutic product effect decreased [Unknown]
